FAERS Safety Report 10637831 (Version 1)
Quarter: 2014Q4

REPORT INFORMATION
  Report Type: Spontaneous
  Country: CH (occurrence: CH)
  Receive Date: 20141208
  Receipt Date: 20141208
  Transmission Date: 20150529
  Serious: Yes (Hospitalization)
  Sender: FDA-Public Use
  Company Number: CH-MYLANLABS-2014M1013018

PATIENT

DRUGS (6)
  1. PHENYTOIN. [Suspect]
     Active Substance: PHENYTOIN
     Indication: EPILEPSY
     Dosage: 150MG INCREASED TO 350MG
     Route: 042
  2. OXCARBAZEPINE. [Concomitant]
     Active Substance: OXCARBAZEPINE
     Indication: EPILEPSY
     Dosage: 1800MG/DAY
     Route: 065
  3. CLONAZEPAM. [Concomitant]
     Active Substance: CLONAZEPAM
     Indication: EPILEPSY
     Dosage: 4MG
     Route: 065
  4. RETIGABINE [Concomitant]
     Active Substance: EZOGABINE
     Indication: EPILEPSY
     Dosage: 1200MG
     Route: 065
  5. PERAMPANEL [Interacting]
     Active Substance: PERAMPANEL
     Indication: EPILEPSY
     Dosage: 2 MG/DAY INCREASED AFTER 2 WEEKS TO 4 MG
     Route: 065
  6. PERAMPANEL [Interacting]
     Active Substance: PERAMPANEL
     Dosage: 4 MG/DAY LATER INCREASE TO 8MG AND THAN SUBSEQUENTLY 14MG
     Route: 065

REACTIONS (3)
  - Drug interaction [Recovered/Resolved]
  - Status epilepticus [Recovered/Resolved]
  - Epilepsy [Recovered/Resolved]
